FAERS Safety Report 21625761 (Version 1)
Quarter: 2022Q4

REPORT INFORMATION
  Report Type: Spontaneous
  Country: US (occurrence: US)
  Receive Date: 20221122
  Receipt Date: 20221122
  Transmission Date: 20230113
  Serious: Yes (Other)
  Sender: FDA-Public Use
  Company Number: US-BIOVITRUM-2022US12970

PATIENT
  Age: 76 Year
  Sex: Female

DRUGS (18)
  1. KINERET [Suspect]
     Active Substance: ANAKINRA
     Indication: Gouty tophus
     Dates: start: 202210
  2. KINERET [Suspect]
     Active Substance: ANAKINRA
     Indication: Product used for unknown indication
     Dates: start: 20221026, end: 20221107
  3. METOLAZONE [Concomitant]
     Active Substance: METOLAZONE
  4. PENICILLIN [Concomitant]
     Active Substance: PENICILLIN
  5. TRIMETHOPRIM [Concomitant]
     Active Substance: TRIMETHOPRIM
  6. BUMETANIDE [Concomitant]
     Active Substance: BUMETANIDE
  7. KCL [Concomitant]
     Active Substance: POTASSIUM CHLORIDE
  8. MAGNESIUM OXIDE [Concomitant]
     Active Substance: MAGNESIUM OXIDE
  9. CARVEDILOL [Concomitant]
     Active Substance: CARVEDILOL
  10. CODEINE [Concomitant]
     Active Substance: CODEINE
  11. ALLOPURINOL [Concomitant]
     Active Substance: ALLOPURINOL
  12. PROTONIX [Concomitant]
     Active Substance: PANTOPRAZOLE SODIUM
  13. KEFLEX [Concomitant]
     Active Substance: CEPHALEXIN
  14. ALDACTONE [Concomitant]
     Active Substance: SPIRONOLACTONE
  15. TORSEMIDE [Concomitant]
     Active Substance: TORSEMIDE
  16. PREDNISONE [Concomitant]
     Active Substance: PREDNISONE
  17. WARFARIN [Concomitant]
     Active Substance: WARFARIN
  18. FERROUS SULFATE [Concomitant]
     Active Substance: FERROUS SULFATE

REACTIONS (7)
  - Arrhythmia [Unknown]
  - Peripheral swelling [Recovering/Resolving]
  - Skin discolouration [Recovering/Resolving]
  - Burning sensation [Recovering/Resolving]
  - Pruritus [Recovering/Resolving]
  - Product intolerance [Unknown]
  - Off label use [Recovered/Resolved]

NARRATIVE: CASE EVENT DATE: 20221026
